FAERS Safety Report 16052963 (Version 1)
Quarter: 2019Q1

REPORT INFORMATION
  Report Type: Report from Study
  Country: US (occurrence: US)
  Receive Date: 20190308
  Receipt Date: 20190308
  Transmission Date: 20190418
  Serious: Yes (Other)
  Sender: FDA-Public Use
  Company Number: US-JNJFOC-20190301279

PATIENT

DRUGS (1)
  1. INFLIXIMAB, RECOMBINANT [Suspect]
     Active Substance: INFLIXIMAB
     Indication: COLITIS
     Route: 042

REACTIONS (10)
  - Clostridium difficile colitis [Unknown]
  - Product use in unapproved indication [Unknown]
  - Musculoskeletal disorder [Unknown]
  - Fluid overload [Unknown]
  - Insomnia [Unknown]
  - Psychotic disorder [Unknown]
  - Hypertension [Unknown]
  - Adrenal insufficiency [Unknown]
  - Hyperglycaemia [Unknown]
  - Off label use [Unknown]
